FAERS Safety Report 4850753-3 (Version None)
Quarter: 2005Q4

REPORT INFORMATION
  Report Type: 
  Country: None (occurrence: None)
  Receive Date: 20051208
  Receipt Date: 20051208
  Transmission Date: 20060501
  Serious: Yes (Hospitalization)
  Sender: FDA-Public Use
  Company Number: None

PATIENT
  Age: 77 Year
  Sex: Male

DRUGS (1)
  1. NEOSTIGMINE  1MG  IV  X1 [Suspect]

REACTIONS (3)
  - BRONCHOSPASM [None]
  - CARDIO-RESPIRATORY ARREST [None]
  - HYPOTENSION [None]
